FAERS Safety Report 20667430 (Version 1)
Quarter: 2022Q2

REPORT INFORMATION
  Report Type: Spontaneous
  Country: CN (occurrence: None)
  Receive Date: 20220404
  Receipt Date: 20220404
  Transmission Date: 20220721
  Serious: Yes (Other)
  Sender: FDA-Public Use
  Company Number: CN-ROCHE-3060000

PATIENT
  Age: 75 Year
  Sex: Male

DRUGS (34)
  1. AVASTIN [Suspect]
     Active Substance: BEVACIZUMAB
     Indication: Metastases to liver
     Dosage: ON DAY 0
     Route: 065
     Dates: start: 20171124
  2. AVASTIN [Suspect]
     Active Substance: BEVACIZUMAB
     Indication: K-ras gene mutation
  3. AVASTIN [Suspect]
     Active Substance: BEVACIZUMAB
     Indication: Colon cancer
  4. OXALIPLATIN [Concomitant]
     Active Substance: OXALIPLATIN
     Indication: Metastases to liver
     Dosage: ON DAY 1
     Dates: start: 20171124, end: 20180108
  5. OXALIPLATIN [Concomitant]
     Active Substance: OXALIPLATIN
     Indication: Colon cancer
     Dosage: ON DAY 1
     Dates: start: 20180325, end: 20180706
  6. OXALIPLATIN [Concomitant]
     Active Substance: OXALIPLATIN
     Indication: K-ras gene mutation
  7. FLUOROURACIL [Concomitant]
     Active Substance: FLUOROURACIL
     Indication: Colon cancer
     Dosage: 0.75G ON DAY 1; 4.5G, CONTINUOUS PUMP INJECTION FOR 46 HOURS
     Dates: start: 20171124, end: 20180108
  8. FLUOROURACIL [Concomitant]
     Active Substance: FLUOROURACIL
     Indication: K-ras gene mutation
  9. FLUOROURACIL [Concomitant]
     Active Substance: FLUOROURACIL
     Indication: Metastases to liver
  10. LEUCOVORIN CALCIUM [Concomitant]
     Active Substance: LEUCOVORIN CALCIUM
     Indication: Colon cancer
     Dates: start: 20171124, end: 20180108
  11. LEUCOVORIN CALCIUM [Concomitant]
     Active Substance: LEUCOVORIN CALCIUM
     Indication: K-ras gene mutation
  12. LEUCOVORIN CALCIUM [Concomitant]
     Active Substance: LEUCOVORIN CALCIUM
     Indication: Metastases to liver
  13. CAPECITABINE [Concomitant]
     Active Substance: CAPECITABINE
     Indication: Colon cancer
     Dosage: ON DAY 1-14, NOT ROCHE DRUG
     Route: 048
     Dates: start: 20180325, end: 20180706
  14. CAPECITABINE [Concomitant]
     Active Substance: CAPECITABINE
     Indication: K-ras gene mutation
  15. CAPECITABINE [Concomitant]
     Active Substance: CAPECITABINE
     Indication: Metastases to liver
  16. GLYCEROL, IODINATED [Concomitant]
     Active Substance: GLYCEROL, IODINATED
     Dates: start: 20180804
  17. IRINOTECAN [Concomitant]
     Active Substance: IRINOTECAN
     Indication: Colon cancer
     Dates: start: 20180804
  18. IRINOTECAN [Concomitant]
     Active Substance: IRINOTECAN
     Indication: K-ras gene mutation
     Dosage: ON DAY 1
     Dates: start: 20180830
  19. IRINOTECAN [Concomitant]
     Active Substance: IRINOTECAN
     Indication: Metastases to liver
  20. RALTITREXED [Concomitant]
     Active Substance: RALTITREXED
     Indication: Colon cancer
     Dates: start: 20180804
  21. RALTITREXED [Concomitant]
     Active Substance: RALTITREXED
     Indication: K-ras gene mutation
     Dosage: ON DAY 1
     Dates: start: 20180830
  22. RALTITREXED [Concomitant]
     Active Substance: RALTITREXED
     Indication: Metastases to liver
  23. FRUQUINTINIB [Concomitant]
     Active Substance: FRUQUINTINIB
     Indication: Colon cancer
     Route: 048
     Dates: start: 201903, end: 201911
  24. FRUQUINTINIB [Concomitant]
     Active Substance: FRUQUINTINIB
     Indication: K-ras gene mutation
  25. FRUQUINTINIB [Concomitant]
     Active Substance: FRUQUINTINIB
     Indication: Metastases to liver
  26. SELUMETINIB [Concomitant]
     Active Substance: SELUMETINIB
     Indication: Colon cancer
     Route: 048
     Dates: start: 202003, end: 202005
  27. SELUMETINIB [Concomitant]
     Active Substance: SELUMETINIB
     Indication: K-ras gene mutation
  28. SELUMETINIB [Concomitant]
     Active Substance: SELUMETINIB
     Indication: Metastases to liver
  29. OLAPARIB [Concomitant]
     Active Substance: OLAPARIB
     Indication: Colon cancer
     Route: 048
     Dates: start: 202007
  30. OLAPARIB [Concomitant]
     Active Substance: OLAPARIB
     Indication: K-ras gene mutation
  31. OLAPARIB [Concomitant]
     Active Substance: OLAPARIB
     Indication: Metastases to liver
  32. REGORAFENIB [Concomitant]
     Active Substance: REGORAFENIB
     Indication: Colon cancer
     Route: 048
     Dates: start: 202104
  33. REGORAFENIB [Concomitant]
     Active Substance: REGORAFENIB
     Indication: K-ras gene mutation
  34. REGORAFENIB [Concomitant]
     Active Substance: REGORAFENIB
     Indication: Metastases to liver

REACTIONS (1)
  - Myelosuppression [Unknown]
